FAERS Safety Report 8221259-9 (Version None)
Quarter: 2012Q1

REPORT INFORMATION
  Report Type: 
  Country: None (occurrence: None)
  Receive Date: 20120320
  Receipt Date: 20120313
  Transmission Date: 20120608
  Serious: Yes (Hospitalization)
  Sender: FDA-Public Use
  Company Number: PHHY2010CA86871

PATIENT
  Sex: Male

DRUGS (3)
  1. ZOMETA [Suspect]
     Indication: PROSTATE CANCER
     Dosage: 3.5 MG EVERY12 WEEKS
     Route: 042
     Dates: start: 20101216
  2. STEROIDS NOS [Concomitant]
  3. ZOMETA [Suspect]
     Dosage: 3.3 MG EVERY 12 WEEKS
     Route: 042

REACTIONS (9)
  - HEART RATE DECREASED [None]
  - WOUND [None]
  - SKIN ATROPHY [None]
  - SKIN DISORDER [None]
  - FALL [None]
  - MUSCULAR WEAKNESS [None]
  - CONTUSION [None]
  - BLOOD SODIUM DECREASED [None]
  - BLOOD PRESSURE DECREASED [None]
